FAERS Safety Report 6642045-7 (Version None)
Quarter: 2010Q1

REPORT INFORMATION
  Report Type: 
  Country: None (occurrence: None)
  Receive Date: 20100319
  Receipt Date: 20100311
  Transmission Date: 20100710
  Serious: Yes (Hospitalization)
  Sender: FDA-Public Use
  Company Number: JP-NOVOPROD-290286

PATIENT
  Sex: Female
  Weight: 40 kg

DRUGS (3)
  1. NOVOLIN R [Suspect]
     Indication: TYPE 2 DIABETES MELLITUS
     Dosage: 6 IU, QD
     Route: 058
     Dates: start: 20080529, end: 20081018
  2. PAXIL [Concomitant]
     Dosage: 20 MG/KG, QD
     Route: 048
     Dates: start: 20061012
  3. ARICEPT                            /01318901/ [Concomitant]
     Dosage: 5 MG, QD
     Route: 048
     Dates: start: 20061024

REACTIONS (2)
  - HYPOGLYCAEMIA [None]
  - RESPIRATORY DISTRESS [None]
